FAERS Safety Report 9316748 (Version 2)
Quarter: 2013Q2

REPORT INFORMATION
  Report Type: Spontaneous
  Country: US (occurrence: US)
  Receive Date: 20130530
  Receipt Date: 20130530
  Transmission Date: 20140414
  Serious: No
  Sender: FDA-Public Use
  Company Number: US-MYLANLABS-2012S1012085

PATIENT
  Age: 57 Year
  Sex: Female

DRUGS (1)
  1. ZOLPIDEM TARTRATE TABLETS [Suspect]
     Indication: INSOMNIA
     Dosage: 1-3 TIMES WEEKLY
     Route: 048
     Dates: start: 201201, end: 20120530

REACTIONS (2)
  - Drug ineffective [Recovered/Resolved]
  - Insomnia [Recovered/Resolved]
